FAERS Safety Report 5564746-4 (Version None)
Quarter: 2007Q4

REPORT INFORMATION
  Report Type: 
  Country: None (occurrence: None)
  Receive Date: 20071218
  Receipt Date: 20071207
  Transmission Date: 20080405
  Serious: Yes (Death)
  Sender: FDA-Public Use
  Company Number: FR-ROCHE-535723

PATIENT
  Age: 73 Year
  Sex: Male

DRUGS (7)
  1. ROCEPHIN [Suspect]
     Indication: URINARY TRACT INFECTION
     Dosage: FORM: INJECTABLE SOLUTION
     Route: 030
     Dates: start: 20070902, end: 20071007
  2. CIFLOX [Suspect]
     Indication: URINARY TRACT INFECTION
     Route: 048
     Dates: start: 20070922, end: 20071007
  3. PREVISCAN [Concomitant]
  4. LASIX [Concomitant]
  5. ISOPTIN [Concomitant]
  6. ZYLORIC [Concomitant]
  7. XATRAL [Concomitant]

REACTIONS (1)
  - TOXIC EPIDERMAL NECROLYSIS [None]
